FAERS Safety Report 22062392 (Version 1)
Quarter: 2023Q1

REPORT INFORMATION
  Report Type: Spontaneous
  Country: US (occurrence: US)
  Receive Date: 20230305
  Receipt Date: 20230305
  Transmission Date: 20230418
  Serious: Yes (Other)
  Sender: FDA-Public Use
  Company Number: US-ELI_LILLY_AND_COMPANY-US202302009736

PATIENT
  Age: 59 Year
  Sex: Female

DRUGS (11)
  1. PROZAC [Suspect]
     Active Substance: FLUOXETINE HYDROCHLORIDE
     Indication: Bipolar disorder
     Dosage: 20 MG, BID
     Route: 065
     Dates: end: 202204
  2. PROZAC [Suspect]
     Active Substance: FLUOXETINE HYDROCHLORIDE
     Dosage: UNK UNK, UNKNOWN (DOSE REDUCED)
     Route: 065
     Dates: start: 202204, end: 2022
  3. PROZAC [Suspect]
     Active Substance: FLUOXETINE HYDROCHLORIDE
     Dosage: 20 MG, BID
     Route: 065
  4. CYMBALTA [Suspect]
     Active Substance: DULOXETINE HYDROCHLORIDE
     Indication: Product used for unknown indication
     Dosage: 90 MG, UNKNOWN
     Route: 065
     Dates: start: 2022
  5. LATUDA [Suspect]
     Active Substance: LURASIDONE HYDROCHLORIDE
     Indication: Bipolar disorder
     Dosage: 180 MG, UNKNOWN
     Route: 065
     Dates: end: 202204
  6. LATUDA [Suspect]
     Active Substance: LURASIDONE HYDROCHLORIDE
     Dosage: UNK UNK, UNKNOWN (DOSE REDUCED)
     Route: 065
     Dates: start: 202204, end: 2022
  7. LITHIUM [Suspect]
     Active Substance: LITHIUM
     Indication: Bipolar disorder
     Dosage: UNK UNK, UNKNOWN
     Route: 065
     Dates: end: 202204
  8. LITHIUM [Suspect]
     Active Substance: LITHIUM
     Dosage: UNK UNK, UNKNOWN (DOSE REDUCED)
     Route: 065
     Dates: start: 202204, end: 2022
  9. CAPLYTA [Suspect]
     Active Substance: LUMATEPERONE
     Indication: Bipolar disorder
     Dosage: 42 MG, UNKNOWN
     Route: 065
     Dates: start: 202204
  10. PROVIGIL [Concomitant]
     Active Substance: MODAFINIL
     Indication: Product used for unknown indication
     Dosage: 100 MG, UNKNOWN
  11. WELLBUTRIN SR [Concomitant]
     Active Substance: BUPROPION HYDROCHLORIDE
     Indication: Product used for unknown indication
     Dosage: 150 MG, UNKNOWN

REACTIONS (5)
  - Depression [Unknown]
  - Mania [Unknown]
  - Performance status decreased [Unknown]
  - Anxiety [Recovered/Resolved]
  - Malaise [Unknown]

NARRATIVE: CASE EVENT DATE: 20220101
